FAERS Safety Report 15172025 (Version 1)
Quarter: 2018Q3

REPORT INFORMATION
  Report Type: Spontaneous
  Country: US (occurrence: US)
  Receive Date: 20180720
  Receipt Date: 20180720
  Transmission Date: 20181010
  Serious: Yes (Other)
  Sender: FDA-Public Use
  Company Number: US-IMPAX LABORATORIES, INC-2018-IPXL-01983

PATIENT
  Age: 78 Year
  Sex: Female

DRUGS (1)
  1. RYTARY [Suspect]
     Active Substance: CARBIDOPA\LEVODOPA
     Indication: PARKINSON^S DISEASE
     Dosage: 36.25/145MG TAKE 1 CAPSULE  TWO TIMES DAILY (BID)
     Route: 048

REACTIONS (4)
  - Head injury [Not Recovered/Not Resolved]
  - Loss of consciousness [Unknown]
  - Back disorder [Unknown]
  - Feeling abnormal [Unknown]
